FAERS Safety Report 19812355 (Version 1)
Quarter: 2021Q3

REPORT INFORMATION
  Report Type: Spontaneous
  Country: US (occurrence: US)
  Receive Date: 20210909
  Receipt Date: 20210909
  Transmission Date: 20211014
  Serious: Yes (Hospitalization, Other)
  Sender: FDA-Public Use
  Company Number: US-ACCORD-237794

PATIENT
  Age: 44 Year
  Sex: Female

DRUGS (2)
  1. METHOTREXATE. [Suspect]
     Active Substance: METHOTREXATE
     Indication: CUTANEOUS SARCOIDOSIS
  2. PREDNISONE. [Suspect]
     Active Substance: PREDNISONE
     Indication: CUTANEOUS SARCOIDOSIS
     Route: 048

REACTIONS (12)
  - Mycotic endophthalmitis [Recovering/Resolving]
  - Cataract [Recovering/Resolving]
  - Off label use [Unknown]
  - Rash [Recovering/Resolving]
  - Abscess [Unknown]
  - Sporotrichosis [Recovering/Resolving]
  - Cellulitis [Recovering/Resolving]
  - Deformity [Unknown]
  - Disseminated sporotrichosis [Recovering/Resolving]
  - Tenosynovitis [Recovering/Resolving]
  - Skin mass [Recovering/Resolving]
  - Iridocyclitis [Recovering/Resolving]
